FAERS Safety Report 17701819 (Version 1)
Quarter: 2020Q2

REPORT INFORMATION
  Report Type: Spontaneous
  Country: SI (occurrence: SI)
  Receive Date: 20200424
  Receipt Date: 20200424
  Transmission Date: 20200714
  Serious: Yes (Hospitalization, Other)
  Sender: FDA-Public Use
  Company Number: SI-BIOVITRUM-2020SI1889

PATIENT
  Age: 16 Year
  Sex: Female
  Weight: 56 kg

DRUGS (5)
  1. MEDROL [Concomitant]
     Active Substance: METHYLPREDNISOLONE
     Indication: STILL^S DISEASE
     Dosage: VARIABLE DOSES (DOSE REDUCTION)
     Route: 048
     Dates: start: 20190802, end: 20191029
  2. KINERET [Suspect]
     Active Substance: ANAKINRA
     Indication: STILL^S DISEASE
     Route: 058
     Dates: start: 20190807, end: 20190919
  3. PANTOPRAZOL TEVA 40 MG [Concomitant]
     Indication: PROPHYLAXIS
     Dosage: ON AN EMPTY STOMACH IN THE MORNING
     Route: 048
     Dates: start: 20190802, end: 20191029
  4. ROCALTROL 0,50 MICROGRAMMES [Concomitant]
     Indication: PRODUCT USED FOR UNKNOWN INDICATION
     Dosage: 0.5 MICROGRAM 1X1 DAILY
     Route: 048
     Dates: start: 20190802, end: 20191029
  5. KALCIJEV KARBONAT KRKA 1 G TABLETE [Concomitant]
     Indication: PRODUCT USED FOR UNKNOWN INDICATION
     Route: 048
     Dates: start: 20190802, end: 20191029

REACTIONS (1)
  - Hepatotoxicity [Recovered/Resolved]

NARRATIVE: CASE EVENT DATE: 2019
